FAERS Safety Report 24621410 (Version 1)
Quarter: 2024Q4

REPORT INFORMATION
  Report Type: Spontaneous
  Country: GB (occurrence: GB)
  Receive Date: 20241114
  Receipt Date: 20241114
  Transmission Date: 20250115
  Serious: Yes (Life-Threatening, Hospitalization, Other)
  Sender: ELI LILLY AND COMPANY
  Company Number: None

PATIENT
  Age: 43 Year
  Sex: Female
  Weight: 65 kg

DRUGS (1)
  1. MOUNJARO [Suspect]
     Active Substance: TIRZEPATIDE
     Indication: Weight control
     Dosage: 2.5 MG, UNKNOWN
     Route: 065
     Dates: start: 20240420, end: 20241020

REACTIONS (6)
  - Liver injury [Not Recovered/Not Resolved]
  - Intestinal obstruction [Recovered/Resolved]
  - Pancreatitis [Unknown]
  - Pain [Unknown]
  - Blood iron increased [Unknown]
  - Off label use [Unknown]

NARRATIVE: CASE EVENT DATE: 20241024
